FAERS Safety Report 5535299-1 (Version None)
Quarter: 2007Q4

REPORT INFORMATION
  Report Type: 
  Country: None (occurrence: None)
  Receive Date: 20071204
  Receipt Date: 20071204
  Transmission Date: 20080405
  Serious: No
  Sender: FDA-Public Use
  Company Number: None

PATIENT
  Age: 59 Year
  Sex: Female
  Weight: 85.503 kg

DRUGS (4)
  1. BYETTA [Suspect]
     Indication: INSULIN RESISTANCE
     Dosage: 10 MCG 2X A DAY SQ
     Route: 058
     Dates: start: 20070901, end: 20070921
  2. BYETTA [Suspect]
     Indication: WEIGHT DECREASED
     Dosage: 10 MCG 2X A DAY SQ
     Route: 058
     Dates: start: 20070901, end: 20070921
  3. BYETTA [Suspect]
     Indication: INSULIN RESISTANCE
     Dosage: 10 MCG 2X A DAY SQ
     Route: 058
     Dates: start: 20071118, end: 20071120
  4. BYETTA [Suspect]
     Indication: WEIGHT DECREASED
     Dosage: 10 MCG 2X A DAY SQ
     Route: 058
     Dates: start: 20071118, end: 20071120

REACTIONS (2)
  - BLOOD GLUCOSE INCREASED [None]
  - WEIGHT DECREASED [None]
